FAERS Safety Report 25642687 (Version 1)
Quarter: 2025Q3

REPORT INFORMATION
  Report Type: Spontaneous
  Country: GB (occurrence: GB)
  Receive Date: 20250805
  Receipt Date: 20250805
  Transmission Date: 20251020
  Serious: Yes (Disabling)
  Sender: AUROBINDO
  Company Number: GB-MHRA-TPP40809905C10246436YC1753095661789

PATIENT
  Age: 75 Year
  Sex: Male
  Weight: 89 kg

DRUGS (28)
  1. CIPROFLOXACIN [Suspect]
     Active Substance: CIPROFLOXACIN
     Indication: Product used for unknown indication
     Dosage: 750 MILLIGRAM, TWO TIMES A DAY
     Route: 065
     Dates: start: 20250714
  2. DULOXETINE [Concomitant]
     Active Substance: DULOXETINE
     Indication: Ill-defined disorder
     Route: 065
     Dates: start: 20221122
  3. BECLOMETHASONE DIPROPIONATE\FORMOTEROL FUMARATE\GLYCOPYRROLATE [Concomitant]
     Active Substance: BECLOMETHASONE DIPROPIONATE\FORMOTEROL FUMARATE\GLYCOPYRROLATE
     Indication: Ill-defined disorder
     Dosage: 2 DOSAGE FORM, TWO TIMES A DAY
     Route: 065
     Dates: start: 20240617
  4. CLOTRIMAZOLE [Concomitant]
     Active Substance: CLOTRIMAZOLE
     Indication: Ill-defined disorder
     Route: 065
     Dates: start: 20250714
  5. PREDNISOLONE [Concomitant]
     Active Substance: PREDNISOLONE
     Indication: Ill-defined disorder
     Route: 065
     Dates: start: 20240902
  6. INSULIN GLARGINE [Concomitant]
     Active Substance: INSULIN GLARGINE
     Indication: Ill-defined disorder
     Route: 065
     Dates: start: 20221122
  7. METFORMIN [Concomitant]
     Active Substance: METFORMIN HYDROCHLORIDE
     Indication: Ill-defined disorder
     Dosage: 2 DOSAGE FORM, TWO TIMES A DAY
     Route: 065
     Dates: start: 20221122
  8. Movelat [Concomitant]
     Indication: Ill-defined disorder
     Route: 065
     Dates: start: 20221122
  9. Performa [Concomitant]
     Indication: Ill-defined disorder
     Route: 065
     Dates: start: 20221122
  10. NITROGLYCERIN [Concomitant]
     Active Substance: NITROGLYCERIN
     Indication: Ill-defined disorder
     Route: 065
     Dates: start: 20230127
  11. NICORANDIL [Concomitant]
     Active Substance: NICORANDIL
     Indication: Ill-defined disorder
     Dosage: 1 DOSAGE FORM, TWO TIMES A DAY
     Route: 065
     Dates: start: 20231030
  12. APIXABAN [Concomitant]
     Active Substance: APIXABAN
     Indication: Ill-defined disorder
     Dosage: 1 DOSAGE FORM, TWO TIMES A DAY
     Route: 065
     Dates: start: 20231128
  13. BISOPROLOL [Concomitant]
     Active Substance: BISOPROLOL
     Indication: Ill-defined disorder
     Dosage: 1 DOSAGE FORM, TWO TIMES A DAY
     Route: 065
     Dates: start: 20231128
  14. CARBOCYSTEINE [Concomitant]
     Active Substance: CARBOCYSTEINE
     Indication: Ill-defined disorder
     Dosage: 2 DOSAGE FORM, 3 TIMES A DAY
     Route: 065
     Dates: start: 20231128
  15. CHLORPHENIRAMINE MALEATE [Concomitant]
     Active Substance: CHLORPHENIRAMINE MALEATE
     Indication: Ill-defined disorder
     Route: 065
     Dates: start: 20231128
  16. BUTYLSCOPOLAMINE BROMIDE [Concomitant]
     Active Substance: BUTYLSCOPOLAMINE BROMIDE
     Indication: Ill-defined disorder
     Dosage: 1 DOSAGE FORM, 3 TIMES A DAY
     Route: 065
     Dates: start: 20231128
  17. LANSOPRAZOLE [Concomitant]
     Active Substance: LANSOPRAZOLE
     Indication: Ill-defined disorder
     Route: 065
     Dates: start: 20231128
  18. MONTELUKAST [Concomitant]
     Active Substance: MONTELUKAST
     Indication: Ill-defined disorder
     Route: 065
     Dates: start: 20231128
  19. RANOLAZINE [Concomitant]
     Active Substance: RANOLAZINE
     Indication: Ill-defined disorder
     Dosage: 1 DOSAGE FORM, TWO TIMES A DAY
     Route: 065
     Dates: start: 20231128
  20. ROSUVASTATIN [Concomitant]
     Active Substance: ROSUVASTATIN
     Indication: Ill-defined disorder
     Route: 065
     Dates: start: 20231128
  21. PROCHLORPERAZINE [Concomitant]
     Active Substance: PROCHLORPERAZINE
     Indication: Ill-defined disorder
     Route: 065
     Dates: start: 20240321
  22. SYMBICORT [Concomitant]
     Active Substance: BUDESONIDE\FORMOTEROL FUMARATE DIHYDRATE
     Indication: Ill-defined disorder
     Dosage: 1 DOSAGE FORM, TWO TIMES A DAY
     Route: 065
     Dates: start: 20240611
  23. VENTOLIN [Concomitant]
     Active Substance: ALBUTEROL SULFATE
     Indication: Ill-defined disorder
     Dosage: 2 DOSAGE FORM, FOUR TIMES/DAY
     Route: 065
     Dates: start: 20240611
  24. NOVORAPID [Concomitant]
     Active Substance: INSULIN ASPART
     Indication: Ill-defined disorder
     Route: 065
     Dates: start: 20240625
  25. DOXYCYCLINE [Concomitant]
     Active Substance: DOXYCYCLINE
     Indication: Ill-defined disorder
     Route: 065
     Dates: start: 20240902
  26. FUROSEMIDE [Concomitant]
     Active Substance: FUROSEMIDE
     Indication: Ill-defined disorder
     Route: 065
     Dates: start: 20241025
  27. COCODAMOL [Concomitant]
     Active Substance: ACETAMINOPHEN\CODEINE PHOSPHATE
     Indication: Ill-defined disorder
     Route: 065
     Dates: start: 20241202
  28. FERROUS SULFATE [Concomitant]
     Active Substance: FERROUS SULFATE
     Indication: Ill-defined disorder
     Dosage: 1 DOSAGE FORM, ONCE A DAY
     Route: 065
     Dates: start: 20241218

REACTIONS (3)
  - Tremor [Unknown]
  - Balance disorder [Recovered/Resolved]
  - Feeling abnormal [Unknown]
